FAERS Safety Report 6316395-8 (Version None)
Quarter: 2009Q3

REPORT INFORMATION
  Report Type: 
  Country: None (occurrence: None)
  Receive Date: 20090820
  Receipt Date: 20090813
  Transmission Date: 20100115
  Serious: Yes (Life-Threatening)
  Sender: FDA-Public Use
  Company Number: B0588535A

PATIENT
  Sex: Female

DRUGS (3)
  1. AUGMENTIN '125' [Suspect]
     Indication: DRUG USE FOR UNKNOWN INDICATION
     Dosage: 2G SINGLE DOSE
     Route: 042
     Dates: start: 20090210, end: 20090210
  2. HYPNOVEL [Suspect]
     Indication: PREMEDICATION
     Dosage: 10MG SINGLE DOSE
     Route: 042
     Dates: start: 20090210, end: 20090210
  3. DIPRIVAN [Suspect]
     Dosage: 120MG SINGLE DOSE
     Route: 042
     Dates: start: 20090210, end: 20090210

REACTIONS (3)
  - DERMATITIS EXFOLIATIVE [None]
  - HYPOTENSION [None]
  - SHOCK [None]
